FAERS Safety Report 14599975 (Version 1)
Quarter: 2018Q1

REPORT INFORMATION
  Report Type: Report from Study
  Country: FR (occurrence: FR)
  Receive Date: 20180305
  Receipt Date: 20180305
  Transmission Date: 20180509
  Serious: Yes (Other)
  Sender: FDA-Public Use
  Company Number: FR-TEVA-2018-FR-863950

PATIENT
  Age: 23 Year
  Sex: Male

DRUGS (1)
  1. VINCRISTINE [Suspect]
     Active Substance: VINCRISTINE
     Indication: NON-HODGKIN^S LYMPHOMA
     Dosage: CUMULATIVE DOSE: 4 MG
     Route: 065

REACTIONS (1)
  - Condition aggravated [Recovering/Resolving]
